FAERS Safety Report 7704712-3 (Version None)
Quarter: 2011Q3

REPORT INFORMATION
  Report Type: 
  Country: None (occurrence: None)
  Receive Date: 20110823
  Receipt Date: 20110815
  Transmission Date: 20111222
  Serious: Yes (Other)
  Sender: FDA-Public Use
  Company Number: US-JNJFOC-20110808970

PATIENT
  Sex: Male
  Weight: 74.84 kg

DRUGS (7)
  1. PREVACID [Concomitant]
     Dates: start: 20090101
  2. REMICADE [Suspect]
     Indication: CROHN'S DISEASE
     Route: 042
     Dates: start: 20110101
  3. ASACOL [Concomitant]
     Dates: start: 20090101
  4. PREVACID [Concomitant]
     Indication: CROHN'S DISEASE
     Dates: start: 20010101
  5. REMICADE [Suspect]
     Indication: COLITIS ULCERATIVE
     Route: 042
     Dates: start: 20110101
  6. ASACOL [Concomitant]
     Indication: CROHN'S DISEASE
     Dates: start: 20010101
  7. LEVAQUIN [Suspect]
     Indication: FISTULA
     Route: 048
     Dates: start: 20110101, end: 20110601

REACTIONS (6)
  - JOINT LOCK [None]
  - INFUSION RELATED REACTION [None]
  - ARTHRALGIA [None]
  - FISTULA [None]
  - ABDOMINAL PAIN UPPER [None]
  - PRURITUS [None]
